FAERS Safety Report 18535576 (Version 1)
Quarter: 2020Q4

REPORT INFORMATION
  Report Type: Spontaneous
  Country: US (occurrence: US)
  Receive Date: 20201123
  Receipt Date: 20201123
  Transmission Date: 20210114
  Serious: No
  Sender: FDA-Public Use
  Company Number: US-ROCHE-2513982

PATIENT
  Age: 60 Year
  Sex: Female
  Weight: 57.66 kg

DRUGS (11)
  1. CITRACAL (UNITED STATES) [Concomitant]
     Dosage: 500 MG VITAMIN D AND 400 MG OF CALCIUM, STARTED ABOUT 10 YEARS AGO 2 TABLETS ONCE A DAY
     Route: 048
  2. CITALOPRAM [Concomitant]
     Active Substance: CITALOPRAM HYDROBROMIDE
     Indication: DEPRESSION
     Dosage: STARTED A FEW YEARS AGO
     Route: 048
  3. DEXILANT [Concomitant]
     Active Substance: DEXLANSOPRAZOLE
     Indication: GASTROOESOPHAGEAL REFLUX DISEASE
     Dosage: STARTED ABOUT 3 MONTHS AGO TAKES IT ON AND OFF
     Route: 048
  4. OMEPRAZOLE. [Concomitant]
     Active Substance: OMEPRAZOLE
     Indication: GASTROOESOPHAGEAL REFLUX DISEASE
     Dosage: STARTED ABOUT 1 MONTH AGO
     Route: 048
     Dates: start: 2019
  5. TAMIFLU [Suspect]
     Active Substance: OSELTAMIVIR PHOSPHATE
     Indication: ANTIVIRAL PROPHYLAXIS
     Dosage: ONGOING: NO
     Route: 048
     Dates: start: 20191223, end: 20191227
  6. TAMIFLU [Suspect]
     Active Substance: OSELTAMIVIR PHOSPHATE
     Dosage: ONGOING: NO
     Route: 048
     Dates: start: 201912, end: 201912
  7. ATORVASTATIN [Concomitant]
     Active Substance: ATORVASTATIN
     Indication: BLOOD CHOLESTEROL INCREASED
     Dosage: ONCE A DAY MAYBE 3 TO 4 TIMES PER WEEK
     Route: 048
     Dates: start: 2016
  8. ATIVAN [Concomitant]
     Active Substance: LORAZEPAM
     Indication: INSOMNIA
     Dosage: AS NEEDED STARTED A COUPLE OF YEARS AGO
     Route: 048
  9. BABY ASPIRIN [Concomitant]
     Active Substance: ASPIRIN
     Dosage: STARTED ABOUT 5 YEARS AGO
     Route: 048
  10. ADVIL [Concomitant]
     Active Substance: IBUPROFEN
     Indication: MYALGIA
     Dosage: 400 TO 600 MG ONCE PER DAY
     Route: 048
  11. NABUMETONE. [Concomitant]
     Active Substance: NABUMETONE
     Indication: MYALGIA
     Dosage: 1-2 TIMES/DAY NOT WITH ADVIL, STARTED 1 MONTH AGO
     Route: 048
     Dates: start: 2019

REACTIONS (4)
  - Dizziness [Not Recovered/Not Resolved]
  - Ventricular extrasystoles [Not Recovered/Not Resolved]
  - Palpitations [Not Recovered/Not Resolved]
  - Intentional product misuse [Unknown]

NARRATIVE: CASE EVENT DATE: 201912
